FAERS Safety Report 24750536 (Version 3)
Quarter: 2025Q2

REPORT INFORMATION
  Report Type: Spontaneous
  Country: JP (occurrence: JP)
  Receive Date: 20241218
  Receipt Date: 20250612
  Transmission Date: 20250717
  Serious: Yes (Hospitalization, Other)
  Sender: BRISTOL-MYERS SQUIBB COMPANY
  Company Number: JP-BRISTOL-MYERS SQUIBB COMPANY-2024-187811

PATIENT
  Age: 71 Year
  Sex: Female

DRUGS (10)
  1. AUGTYRO [Suspect]
     Active Substance: REPOTRECTINIB
     Indication: Non-small cell lung cancer
     Dosage: FROM DAY 1 TO DAY 9
     Route: 048
     Dates: start: 202411, end: 202412
  2. AUGTYRO [Suspect]
     Active Substance: REPOTRECTINIB
     Dosage: FROM DAY 16
     Route: 048
     Dates: start: 202412
  3. MIDODRINE [Suspect]
     Active Substance: MIDODRINE
     Indication: Hypotension
     Dates: start: 202412, end: 202502
  4. MIDODRINE [Suspect]
     Active Substance: MIDODRINE
     Dates: start: 202502, end: 202503
  5. MIDODRINE [Suspect]
     Active Substance: MIDODRINE
  6. DISOPYRAMIDE [Suspect]
     Active Substance: DISOPYRAMIDE
     Indication: Product used for unknown indication
     Dates: start: 202502, end: 202503
  7. MIROGABALIN BESYLATE [Concomitant]
     Active Substance: MIROGABALIN BESYLATE
     Indication: Product used for unknown indication
     Dates: start: 202501, end: 202502
  8. MIROGABALIN BESYLATE [Concomitant]
     Active Substance: MIROGABALIN BESYLATE
     Dates: start: 202502, end: 202502
  9. MIROGABALIN BESYLATE [Concomitant]
     Active Substance: MIROGABALIN BESYLATE
     Dates: start: 202502, end: 202502
  10. MIROGABALIN BESYLATE [Concomitant]
     Active Substance: MIROGABALIN BESYLATE
     Dates: start: 202502

REACTIONS (7)
  - Somnolence [Recovering/Resolving]
  - Syncope [Recovered/Resolved]
  - Dizziness [Recovered/Resolved]
  - Neuropathy peripheral [Recovering/Resolving]
  - Nausea [Recovering/Resolving]
  - Hypotension [Recovered/Resolved]
  - Condition aggravated [Recovering/Resolving]

NARRATIVE: CASE EVENT DATE: 20241101
